FAERS Safety Report 16952753 (Version 1)
Quarter: 2019Q4

REPORT INFORMATION
  Report Type: Spontaneous
  Country: US (occurrence: US)
  Receive Date: 20190904
  Receipt Date: 20190904
  Transmission Date: 20200122
  Serious: Yes (Hospitalization)
  Sender: FDA-Public Use
  Company Number: None

PATIENT
  Age: 64 Year
  Sex: Female

DRUGS (12)
  1. HUMIRA [Suspect]
     Active Substance: ADALIMUMAB
     Indication: RHEUMATOID ARTHRITIS
     Route: 058
     Dates: start: 20170816
  2. QUINAPRIL. [Concomitant]
     Active Substance: QUINAPRIL
  3. APAP/CODEINE [Concomitant]
     Active Substance: ACETAMINOPHEN\CODEINE PHOSPHATE
  4. FOLIC ACID. [Concomitant]
     Active Substance: FOLIC ACID
  5. LYRICA [Concomitant]
     Active Substance: PREGABALIN
  6. VIT D [Concomitant]
     Active Substance: VITAMIN D NOS
  7. METHOTREXATE. [Concomitant]
     Active Substance: METHOTREXATE
  8. CELEBREX [Concomitant]
     Active Substance: CELECOXIB
  9. PREDNISONE. [Concomitant]
     Active Substance: PREDNISONE
  10. CYCLOBENZAPR [Concomitant]
     Active Substance: CYCLOBENZAPRINE
  11. PREGABALIN. [Concomitant]
     Active Substance: PREGABALIN
  12. AMLODIPINE [Concomitant]
     Active Substance: AMLODIPINE BESYLATE

REACTIONS (2)
  - Therapy cessation [None]
  - Foot operation [None]

NARRATIVE: CASE EVENT DATE: 201906
